FAERS Safety Report 10922226 (Version 1)
Quarter: 2015Q1

REPORT INFORMATION
  Report Type: Spontaneous
  Country: US (occurrence: US)
  Receive Date: 20150317
  Receipt Date: 20150317
  Transmission Date: 20150721
  Serious: No
  Sender: FDA-Public Use
  Company Number: US-ASTRAZENECA-2006BM01287

PATIENT
  Age: 852 Month
  Sex: Female
  Weight: 83.9 kg

DRUGS (7)
  1. BYETTA [Suspect]
     Active Substance: EXENATIDE
     Indication: TYPE 2 DIABETES MELLITUS
     Route: 058
     Dates: start: 20051228
  2. CADUET [Concomitant]
     Active Substance: AMLODIPINE BESYLATE\ATORVASTATIN CALCIUM
     Dosage: UNK
  3. BYDUREON [Suspect]
     Active Substance: EXENATIDE
     Indication: TYPE 2 DIABETES MELLITUS
     Route: 058
  4. CRESTOR [Suspect]
     Active Substance: ROSUVASTATIN CALCIUM
     Route: 048
  5. COZAAR [Concomitant]
     Active Substance: LOSARTAN POTASSIUM
     Indication: HYPERTENSION
     Dates: start: 2003
  6. ACTOS [Concomitant]
     Active Substance: PIOGLITAZONE HYDROCHLORIDE
     Indication: TYPE 2 DIABETES MELLITUS
     Route: 048
  7. LANACANE [Concomitant]
     Active Substance: BENZOCAINE
     Indication: RASH

REACTIONS (13)
  - Cataract [Unknown]
  - Rash [Not Recovered/Not Resolved]
  - Nervousness [Unknown]
  - Drug dose omission [Unknown]
  - Blood glucose decreased [Recovered/Resolved]
  - Injection site haemorrhage [Unknown]
  - Weight increased [Unknown]
  - Dizziness [Recovered/Resolved]
  - Fatigue [Recovered/Resolved]
  - Intentional product misuse [Unknown]
  - Nausea [Recovered/Resolved]
  - Device misuse [Unknown]
  - Injection site extravasation [Unknown]

NARRATIVE: CASE EVENT DATE: 200601
